FAERS Safety Report 10658803 (Version 2)
Quarter: 2014Q4

REPORT INFORMATION
  Report Type: Spontaneous
  Country: US (occurrence: US)
  Receive Date: 20141217
  Receipt Date: 20141217
  Transmission Date: 20150529
  Serious: No
  Sender: FDA-Public Use
  Company Number: US-GLAXOSMITHKLINE-A1071914A

PATIENT

DRUGS (4)
  1. MORPHINE [Concomitant]
     Active Substance: MORPHINE
  2. STOOL SOFTENER [Concomitant]
     Active Substance: DOCUSATE CALCIUM
  3. ROBITUSSIN (GUAIFENESIN) [Concomitant]
     Active Substance: GUAIFENESIN
  4. VOTRIENT [Suspect]
     Active Substance: PAZOPANIB HYDROCHLORIDE
     Indication: PRODUCT USED FOR UNKNOWN INDICATION
     Dosage: 800MG BY MOUTH DAILY
     Route: 048
     Dates: start: 20140401

REACTIONS (2)
  - Hospice care [Unknown]
  - Disease progression [Unknown]

NARRATIVE: CASE EVENT DATE: 20140501
